FAERS Safety Report 10044637 (Version 2)
Quarter: 2014Q2

REPORT INFORMATION
  Report Type: Spontaneous
  Country: US (occurrence: US)
  Receive Date: 20140328
  Receipt Date: 20140418
  Transmission Date: 20141212
  Serious: No
  Sender: FDA-Public Use
  Company Number: US-ROXANE LABORATORIES, INC.-2014-RO-00479RO

PATIENT
  Age: 49 Year
  Sex: Male

DRUGS (5)
  1. MONTELUKAST SODIUM [Suspect]
     Indication: PRODUCT USED FOR UNKNOWN INDICATION
     Dosage: 10 MG
     Route: 065
     Dates: start: 20140301, end: 20140317
  2. ADVAIR HFA [Concomitant]
     Indication: ASTHMA
     Route: 065
     Dates: start: 2010
  3. NASONEX [Concomitant]
     Indication: RHINITIS ALLERGIC
     Route: 065
     Dates: start: 1998
  4. ZYRTEC [Concomitant]
     Indication: RHINITIS ALLERGIC
     Route: 065
     Dates: start: 1998
  5. ALBUTEROL HFA [Concomitant]
     Indication: ASTHMA
     Route: 065
     Dates: start: 2013

REACTIONS (1)
  - Eyelid oedema [Not Recovered/Not Resolved]
